FAERS Safety Report 9262381 (Version 1)
Quarter: 2013Q2

REPORT INFORMATION
  Report Type: Spontaneous
  Country: US (occurrence: None)
  Receive Date: 20130425
  Receipt Date: 20130425
  Transmission Date: 20140414
  Serious: No
  Sender: FDA-Public Use
  Company Number: None

PATIENT
  Age: 77 Year
  Sex: Male
  Weight: 65.5 kg

DRUGS (2)
  1. AZTREONAM [Suspect]
     Indication: BACTERIAL INFECTION
     Route: 042
     Dates: start: 20130206, end: 20130207
  2. VANCOMYCIN [Suspect]
     Route: 042
     Dates: start: 20130205

REACTIONS (5)
  - Urticaria [None]
  - Pruritus [None]
  - Erythema [None]
  - Rash [None]
  - Pleural effusion [None]
